FAERS Safety Report 11115800 (Version 5)
Quarter: 2015Q4

REPORT INFORMATION
  Report Type: Report from Study
  Country: ES (occurrence: ES)
  Receive Date: 20150515
  Receipt Date: 20151231
  Transmission Date: 20160304
  Serious: Yes (Hospitalization, Other)
  Sender: FDA-Public Use
  Company Number: ES-PFIZER INC-2015155094

PATIENT
  Age: 63 Year
  Sex: Female
  Weight: 84.5 kg

DRUGS (7)
  1. NALOXONE, OXYCODONE [Concomitant]
     Indication: ANALGESIC THERAPY
     Dosage: UNK
     Route: 048
  2. OMEPRAZOLE. [Concomitant]
     Active Substance: OMEPRAZOLE
     Indication: PROPHYLAXIS
     Dosage: UNK
     Route: 048
  3. CALCIUM [Concomitant]
     Active Substance: CALCIUM
     Indication: OSTEOPOROSIS PROPHYLAXIS
     Dosage: UNK
     Route: 048
  4. EXEMESTANE. [Suspect]
     Active Substance: EXEMESTANE
     Indication: BREAST CANCER METASTATIC
     Dosage: 25 MG, DAILY
     Dates: start: 20140821
  5. METAMIZOLE [Concomitant]
     Active Substance: METAMIZOLE
     Indication: PAIN PROPHYLAXIS
     Dosage: UNK
     Route: 048
  6. PARACETAMOL [Concomitant]
     Active Substance: ACETAMINOPHEN
     Indication: PAIN PROPHYLAXIS
     Dosage: UNK
     Route: 048
  7. PALBOCICLIB [Suspect]
     Active Substance: PALBOCICLIB
     Indication: BREAST CANCER METASTATIC
     Dosage: 125 MG, CYCLIC (DAILY 1-21 DAYS)
     Dates: start: 20140821

REACTIONS (2)
  - Dyspnoea [Recovered/Resolved]
  - Pneumonia [Recovered/Resolved]

NARRATIVE: CASE EVENT DATE: 20150504
